FAERS Safety Report 7961298-6 (Version None)
Quarter: 2011Q4

REPORT INFORMATION
  Report Type: 
  Country: None (occurrence: None)
  Receive Date: 20111207
  Receipt Date: 20111122
  Transmission Date: 20120403
  Serious: Yes (Other)
  Sender: FDA-Public Use
  Company Number: PHFR2011GB04221

PATIENT
  Sex: Female

DRUGS (2)
  1. CLOZARIL [Suspect]
     Route: 048
     Dates: start: 20101126
  2. CLOZARIL [Suspect]
     Route: 048
     Dates: start: 20111001

REACTIONS (4)
  - SUPRAVENTRICULAR TACHYCARDIA [None]
  - NEUTROPHILIA [None]
  - TACHYCARDIA [None]
  - WHITE BLOOD CELL COUNT INCREASED [None]
